FAERS Safety Report 15467942 (Version 4)
Quarter: 2021Q4

REPORT INFORMATION
  Report Type: Spontaneous
  Country: US (occurrence: US)
  Receive Date: 20181005
  Receipt Date: 20211126
  Transmission Date: 20220303
  Serious: No
  Sender: FDA-Public Use
  Company Number: US-SA-2018SA270871

PATIENT
  Age: 65 Year
  Sex: Female
  Weight: 74.83 kg

DRUGS (21)
  1. AUBAGIO [Suspect]
     Active Substance: TERIFLUNOMIDE
     Indication: Multiple sclerosis
     Dosage: 14 MG, QD
     Route: 048
     Dates: start: 20180517
  2. AUBAGIO [Suspect]
     Active Substance: TERIFLUNOMIDE
     Dosage: 14 MG, QD
     Route: 048
     Dates: start: 20200517
  3. ATORVASTATIN [Concomitant]
     Active Substance: ATORVASTATIN
  4. CALCITRIOL [Concomitant]
     Active Substance: CALCITRIOL
  5. CETIRIZINE HYDROCHLORIDE [Concomitant]
     Active Substance: CETIRIZINE HYDROCHLORIDE
  6. CHOLECALCIFEROL [Concomitant]
     Active Substance: CHOLECALCIFEROL
  7. CYANOCOBALAMIN [Concomitant]
     Active Substance: CYANOCOBALAMIN
  8. ESOMEPRAZOLE [Concomitant]
     Active Substance: ESOMEPRAZOLE
  9. FERROUS SULFATE [Concomitant]
     Active Substance: FERROUS SULFATE
  10. FLUTICASONE [Concomitant]
     Active Substance: FLUTICASONE
  11. HYDROCODONE [Concomitant]
     Active Substance: HYDROCODONE
  12. LORATADINE [Concomitant]
     Active Substance: LORATADINE
  13. LYRICA [Concomitant]
     Active Substance: PREGABALIN
  14. MAGNESIUM [Concomitant]
     Active Substance: MAGNESIUM
  15. MINERALS\VITAMINS [Concomitant]
     Active Substance: MINERALS\VITAMINS
  16. TRAMADOL [Concomitant]
     Active Substance: TRAMADOL
  17. VITAMIN B12 [Concomitant]
     Active Substance: CYANOCOBALAMIN
  18. C - [Concomitant]
  19. VITAMIN D3 [Concomitant]
     Active Substance: CHOLECALCIFEROL
  20. LISINOPRIL [Concomitant]
     Active Substance: LISINOPRIL
  21. TECFIDERA [Concomitant]
     Active Substance: DIMETHYL FUMARATE

REACTIONS (5)
  - Rotator cuff syndrome [Unknown]
  - Condition aggravated [Unknown]
  - Arthropathy [Unknown]
  - Tremor [Unknown]
  - Alopecia [Unknown]

NARRATIVE: CASE EVENT DATE: 20180601
